FAERS Safety Report 16775387 (Version 1)
Quarter: 2019Q3

REPORT INFORMATION
  Report Type: Spontaneous
  Country: US (occurrence: US)
  Receive Date: 20190715
  Receipt Date: 20190715
  Transmission Date: 20191005
  Serious: Yes (Hospitalization)
  Sender: FDA-Public Use
  Company Number: None

PATIENT
  Age: 82 Year
  Sex: Female
  Weight: 68.49 kg

DRUGS (11)
  1. GABAPENTIN. [Concomitant]
     Active Substance: GABAPENTIN
  2. CLOPIDOGREL [Concomitant]
     Active Substance: CLOPIDOGREL BISULFATE
  3. ITRACONAZOLE 100MG [Suspect]
     Active Substance: ITRACONAZOLE
     Indication: FUNGAL INFECTION
     Dosage: ?          QUANTITY:2 DF DOSAGE FORM;?
     Route: 048
     Dates: start: 20190521, end: 20190618
  4. LEVOTHYROXINE. [Suspect]
     Active Substance: LEVOTHYROXINE
  5. LOSARTAN. [Concomitant]
     Active Substance: LOSARTAN
  6. ITRACONAZOLE 100MG [Suspect]
     Active Substance: ITRACONAZOLE
     Indication: LUNG INFECTION
     Dosage: ?          QUANTITY:2 DF DOSAGE FORM;?
     Route: 048
     Dates: start: 20190521, end: 20190618
  7. CLONAZEPAM. [Concomitant]
     Active Substance: CLONAZEPAM
  8. PRESER VISION [Concomitant]
  9. CALCIUM [Concomitant]
     Active Substance: CALCIUM
  10. PROPRANOLOL [Concomitant]
     Active Substance: PROPRANOLOL HYDROCHLORIDE
  11. MOVE FREE JOINT HEALTH [Concomitant]

REACTIONS (10)
  - Gait disturbance [None]
  - Back pain [None]
  - Hypertension [None]
  - Burning sensation [None]
  - Onychoclasis [None]
  - Pain in extremity [None]
  - Nail ridging [None]
  - Alopecia [None]
  - Musculoskeletal pain [None]
  - Arthralgia [None]

NARRATIVE: CASE EVENT DATE: 20190614
